FAERS Safety Report 11557984 (Version 1)
Quarter: 2015Q3

REPORT INFORMATION
  Report Type: Spontaneous
  Country: US (occurrence: None)
  Receive Date: 20150924
  Receipt Date: 20150924
  Transmission Date: 20151125
  Serious: Yes (Hospitalization)
  Sender: FDA-Public Use
  Company Number: 2015HINLIT0790

PATIENT
  Age: 24 Year
  Sex: Male

DRUGS (7)
  1. LEVETIRACTAM [Suspect]
     Active Substance: LEVETIRACETAM
     Indication: SEIZURE
     Dosage: LOADING DOSE
  2. GENTAMICIN (GENTAMICIN) [Concomitant]
     Active Substance: GENTAMICIN
  3. CEFTRIAXONE (CEFTRIAXONE) [Concomitant]
     Active Substance: CEFTRIAXONE
  4. ACICLOVIR (ACICLOVIR) [Concomitant]
     Active Substance: ACYCLOVIR
  5. VANCOMYCIN (VANCOMYCIN) [Concomitant]
     Active Substance: VANCOMYCIN
  6. FLUCONAZOLE (FLUCONAZOLE) [Concomitant]
     Active Substance: FLUCONAZOLE
  7. ERTAPENEM (ERTAPENEM) [Concomitant]
     Active Substance: ERTAPENEM

REACTIONS (2)
  - Pyrexia [None]
  - Eosinophilia [None]
